FAERS Safety Report 7597906-1 (Version None)
Quarter: 2011Q3

REPORT INFORMATION
  Report Type: 
  Country: None (occurrence: None)
  Receive Date: 20110708
  Receipt Date: 20110705
  Transmission Date: 20111222
  Serious: Yes (Death, Hospitalization)
  Sender: FDA-Public Use
  Company Number: US-CEPHALON-2011003554

PATIENT
  Age: 80 Year
  Sex: Male

DRUGS (2)
  1. TREANDA [Suspect]
     Indication: CHRONIC LYMPHOCYTIC LEUKAEMIA
     Route: 042
  2. RITUXAN [Concomitant]

REACTIONS (3)
  - MULTI-ORGAN FAILURE [None]
  - NEUTROPENIA [None]
  - PNEUMONIA [None]
